FAERS Safety Report 8647305 (Version 2)
Quarter: 2013Q1

REPORT INFORMATION
  Report Type: Spontaneous
  Country: US (occurrence: US)
  Receive Date: 20120703
  Receipt Date: 20130204
  Transmission Date: 20140127
  Serious: Yes (Other)
  Sender: FDA-Public Use
  Company Number: US-TEVA-337407USA

PATIENT
  Sex: Female
  Weight: 90.8 kg

DRUGS (13)
  1. NUVIGIL [Suspect]
     Indication: NARCOLEPSY
     Dosage: 250 MILLIGRAM DAILY;
     Route: 048
  2. MODAFINIL [Suspect]
     Indication: NARCOLEPSY
     Dosage: 200 MILLIGRAM DAILY;
  3. CEFALEXIN [Concomitant]
     Indication: INFECTION
     Route: 048
     Dates: start: 20120501
  4. STEROID ANTIBACTERIALS [Concomitant]
     Indication: INFECTION
     Dates: start: 20120501
  5. MELOXICAM [Concomitant]
     Indication: EXOSTOSIS
     Route: 048
  6. FENOFIBRATE [Concomitant]
     Indication: BLOOD CHOLESTEROL
     Dosage: 60 MILLIGRAM DAILY;
     Route: 048
  7. PRIMIDONE [Concomitant]
     Indication: TREMOR
     Route: 048
  8. SELEGILINE [Concomitant]
     Indication: TREMOR
     Route: 048
  9. PAROXETINE [Concomitant]
     Indication: ANXIETY
     Dosage: 20 MILLIGRAM DAILY;
     Route: 048
  10. ARIPIPRAZOLE [Concomitant]
     Indication: DEPRESSION
     Route: 048
  11. MONTELUKAST [Concomitant]
     Indication: HYPERSENSITIVITY
     Dosage: 10 MILLIGRAM DAILY;
     Route: 048
  12. SIMVASTATIN [Concomitant]
     Indication: BLOOD CHOLESTEROL
     Dosage: 40 MILLIGRAM DAILY;
     Route: 048
  13. LEVOCETIRIZINE [Concomitant]
     Indication: HYPERSENSITIVITY

REACTIONS (3)
  - Cellulitis [Unknown]
  - Conjunctivitis infective [Not Recovered/Not Resolved]
  - Rash [Recovered/Resolved]
